FAERS Safety Report 5828432-5 (Version None)
Quarter: 2008Q3

REPORT INFORMATION
  Report Type: 
  Country: None (occurrence: None)
  Receive Date: 20080731
  Receipt Date: 20080723
  Transmission Date: 20090109
  Serious: Yes (Life-Threatening)
  Sender: FDA-Public Use
  Company Number: US-ROCHE-577089

PATIENT
  Sex: Female
  Weight: 72.6 kg

DRUGS (10)
  1. BONIVA [Suspect]
     Indication: OSTEOPENIA
     Route: 042
     Dates: start: 20080723, end: 20080723
  2. BONIVA [Suspect]
     Route: 048
  3. LEXAPRO [Concomitant]
     Indication: DEPRESSION
     Dosage: DAILY
     Route: 048
  4. SYNTHROID [Concomitant]
     Indication: HYPOTHYROIDISM
     Dosage: DAILY
     Route: 048
  5. ACIPHEX [Concomitant]
     Dosage: DAILY
     Route: 048
  6. ARTHROTEC [Concomitant]
     Indication: SCIATICA
     Dosage: DAILY
     Route: 048
  7. ASPIRIN [Concomitant]
     Indication: ANTICOAGULANT THERAPY
     Dosage: DAILY
     Route: 048
  8. DRISDOL [Concomitant]
     Indication: VITAMIN D DEFICIENCY
  9. ESTRADIOL [Concomitant]
     Indication: MENOPAUSAL SYMPTOMS
     Dosage: 0.5 PATCH
  10. DOXYCYCLIN [Concomitant]

REACTIONS (2)
  - ANAPHYLACTIC REACTION [None]
  - GASTROINTESTINAL DISORDER [None]
